FAERS Safety Report 10215868 (Version 1)
Quarter: 2014Q2

REPORT INFORMATION
  Report Type: Other
  Country: GB (occurrence: GB)
  Receive Date: 20140604
  Receipt Date: 20140604
  Transmission Date: 20141212
  Serious: Yes (Death)
  Sender: FDA-Public Use
  Company Number: GB-SUN PHARMACEUTICAL INDUSTRIES LTD-2014SUN01184

PATIENT
  Sex: 0

DRUGS (6)
  1. VENLAFAXINE HYDROCHLORIDE 37.5MG TABLET [Suspect]
     Indication: PRODUCT USED FOR UNKNOWN INDICATION
     Dosage: 150 MG, DAILY
     Route: 048
  2. AMISULPRIDE [Suspect]
     Indication: PRODUCT USED FOR UNKNOWN INDICATION
     Dosage: UNK
     Route: 048
  3. CLOZARIL [Suspect]
     Indication: SCHIZOPHRENIA
     Dosage: UNK
     Route: 048
     Dates: start: 20050818
  4. CLOZARIL [Suspect]
     Dosage: 400 MG, DAILY
     Route: 048
  5. METHIOPROPAMINE [Suspect]
     Indication: PRODUCT USED FOR UNKNOWN INDICATION
     Route: 065
  6. METHYLETHCATHINONE [Suspect]
     Indication: PRODUCT USED FOR UNKNOWN INDICATION

REACTIONS (8)
  - Cardiac arrest [Fatal]
  - Toxicity to various agents [Fatal]
  - Haemorrhoids [Unknown]
  - Mental impairment [Unknown]
  - Scab [None]
  - Arteriosclerosis coronary artery [None]
  - Coronary artery stenosis [None]
  - Pulmonary congestion [None]
